FAERS Safety Report 11121112 (Version 2)
Quarter: 2015Q2

REPORT INFORMATION
  Report Type: Spontaneous
  Country: RU (occurrence: RU)
  Receive Date: 20150519
  Receipt Date: 20150523
  Transmission Date: 20150821
  Serious: Yes (Hospitalization)
  Sender: FDA-Public Use
  Company Number: RU-AMGEN-RUSSP2015036033

PATIENT
  Age: 31 Year
  Sex: Female
  Weight: 60 kg

DRUGS (2)
  1. NPLATE [Suspect]
     Active Substance: ROMIPLOSTIM
     Indication: PRODUCT USED FOR UNKNOWN INDICATION
     Dosage: 250 MKG, QWK
     Route: 058
  2. PREDNISOLONE. [Concomitant]
     Active Substance: PREDNISOLONE
     Indication: THROMBOCYTOPENIA
     Dosage: 20 MG, QD
     Dates: start: 20150220, end: 20150401

REACTIONS (1)
  - Pregnancy [Not Recovered/Not Resolved]

NARRATIVE: CASE EVENT DATE: 20141001
